FAERS Safety Report 24037482 (Version 2)
Quarter: 2024Q3

REPORT INFORMATION
  Report Type: Spontaneous
  Country: GB (occurrence: GB)
  Receive Date: 20240702
  Receipt Date: 20240826
  Transmission Date: 20241016
  Serious: Yes (Hospitalization, Disabling, Other)
  Sender: CHEPLAPHARM
  Company Number: None

PATIENT
  Age: 37 Year
  Sex: Male

DRUGS (13)
  1. OLANZAPINE [Suspect]
     Active Substance: OLANZAPINE
     Indication: Product used for unknown indication
     Dosage: 120 MILLIGRAM; VERY HIGH VIA OCCLUSIVE ROUTE
     Dates: start: 20140301
  2. OLANZAPINE [Suspect]
     Active Substance: OLANZAPINE
     Indication: Product used for unknown indication
     Dosage: OCCLUSIVE DRESSING TECHNIQUE, DOSE DECREASE
  3. OLANZAPINE [Suspect]
     Active Substance: OLANZAPINE
     Indication: Product used for unknown indication
     Dosage: OCCLUSIVE DRESSING TECHNIQUE
  4. ABILIFY MAINTENA [Suspect]
     Active Substance: ARIPIPRAZOLE
     Indication: Product used for unknown indication
     Dosage: 400 MG, OTHER (VERY VERY HIGH, AT LEAST 400 MG, FOR YEARS)
     Dates: start: 20090101
  5. ABILIFY MAINTENA [Suspect]
     Active Substance: ARIPIPRAZOLE
     Indication: Product used for unknown indication
     Dosage: 400 MG, OTHER (VERY VERY HIGH, AT LEAST 400 MG, FOR YEARS)
  6. ARIPIPRAZOLE [Suspect]
     Active Substance: ARIPIPRAZOLE
     Indication: Product used for unknown indication
     Dosage: 400 MILLIGRAM (AT LEAST 400 MG)
  7. ARIPIPRAZOLE [Suspect]
     Active Substance: ARIPIPRAZOLE
     Indication: Product used for unknown indication
     Dosage: UNK (DOSE INCREASED)
  8. CLOZAPINE [Suspect]
     Active Substance: CLOZAPINE
     Indication: Product used for unknown indication
     Dosage: OCCLUSIVE DRESSING TECHNIQUE
  9. ARIPIPRAZOLE [Suspect]
     Active Substance: ARIPIPRAZOLE
     Indication: Product used for unknown indication
     Dates: start: 20090101
  10. ARIPIPRAZOLE [Suspect]
     Active Substance: ARIPIPRAZOLE
     Indication: Product used for unknown indication
     Dosage: 400 MILLIGRAM (AT LEAST 400MG)
  11. ARIPIPRAZOLE [Suspect]
     Active Substance: ARIPIPRAZOLE
     Indication: Product used for unknown indication
     Dosage: UNK (DOSE INCREASED)
  12. ARIPIPRAZOLE [Suspect]
     Active Substance: ARIPIPRAZOLE
     Indication: Product used for unknown indication
  13. ARIPIPRAZOLE [Suspect]
     Active Substance: ARIPIPRAZOLE
     Indication: Product used for unknown indication
     Dosage: UNK, (OCCLUSIVE DRESSING TECHNIQUE)

REACTIONS (23)
  - Diarrhoea [Not Recovered/Not Resolved]
  - Pruritus [Unknown]
  - Pain [Unknown]
  - Scratch [Unknown]
  - Discomfort [Not Recovered/Not Resolved]
  - Visual impairment [Unknown]
  - Personality change [Unknown]
  - Musculoskeletal stiffness [Unknown]
  - Anxiety [Unknown]
  - Lethargy [Unknown]
  - Visual impairment [Unknown]
  - Skin irritation [Unknown]
  - Irritability [Unknown]
  - Injection site pain [Unknown]
  - Product prescribing error [Unknown]
  - Weight increased [Unknown]
  - Akathisia [Unknown]
  - Diabetes mellitus [Unknown]
  - Somnolence [Unknown]
  - Irritable bowel syndrome [Unknown]
  - Pollakiuria [Unknown]
  - Tension [Unknown]
  - Loss of personal independence in daily activities [Unknown]

NARRATIVE: CASE EVENT DATE: 20090101
